FAERS Safety Report 4930110-1 (Version None)
Quarter: 2006Q1

REPORT INFORMATION
  Report Type: 
  Country: None (occurrence: None)
  Receive Date: 20060302
  Receipt Date: 20060216
  Transmission Date: 20060701
  Serious: Yes (Death)
  Sender: FDA-Public Use
  Company Number: DE-AMGEN-UK169503

PATIENT

DRUGS (1)
  1. KEPIVANCE [Suspect]
     Indication: PERIPHERAL BLOOD STEM CELL APHERESIS
     Route: 065

REACTIONS (2)
  - DEATH [None]
  - PNEUMONIA [None]
